FAERS Safety Report 9419710 (Version 4)
Quarter: 2013Q3

REPORT INFORMATION
  Report Type: Spontaneous
  Country: IL (occurrence: IL)
  Receive Date: 20130725
  Receipt Date: 20130902
  Transmission Date: 20140515
  Serious: Yes (Death, Hospitalization)
  Sender: FDA-Public Use
  Company Number: IL-ROCHE-1252522

PATIENT
  Age: 75 Year
  Sex: Male

DRUGS (1)
  1. ERIVEDGE [Suspect]
     Indication: BASAL CELL CARCINOMA
     Route: 048

REACTIONS (4)
  - Renal failure acute [Fatal]
  - Arrhythmia [Fatal]
  - Disease progression [Not Recovered/Not Resolved]
  - Asthenia [Recovering/Resolving]
